FAERS Safety Report 16965362 (Version 1)
Quarter: 2019Q4

REPORT INFORMATION
  Report Type: Spontaneous
  Country: FI (occurrence: FI)
  Receive Date: 20191028
  Receipt Date: 20191028
  Transmission Date: 20200122
  Serious: Yes (Other)
  Sender: FDA-Public Use
  Company Number: FI-PFIZER INC-2019460027

PATIENT
  Sex: Male

DRUGS (1)
  1. METHOTREXATE SODIUM. [Suspect]
     Active Substance: METHOTREXATE SODIUM
     Indication: PSORIASIS
     Dosage: UNK

REACTIONS (1)
  - Metastatic renal cell carcinoma [Unknown]

NARRATIVE: CASE EVENT DATE: 201808
